FAERS Safety Report 8501423-1 (Version None)
Quarter: 2012Q3

REPORT INFORMATION
  Report Type: 
  Country: None (occurrence: None)
  Receive Date: 20120710
  Receipt Date: 20120629
  Transmission Date: 20120928
  Serious: Yes (Hospitalization)
  Sender: FDA-Public Use
  Company Number: UY-BAXTER-2012BAX007510

PATIENT
  Age: 60 Year
  Sex: Male
  Weight: 99 kg

DRUGS (4)
  1. EXTRANEAL [Suspect]
     Indication: DIALYSIS
     Route: 033
  2. SOLUCION PARA DIALISIS PERITONEAL 1,5% BAXTER - DIANEAL PD-2 [Suspect]
     Route: 033
  3. SOLUCION PARA DIALISIS PERITONEAL 2,5% BAXTER - DIANEAL PD-2 [Suspect]
     Route: 033
  4. SOLUCION PARA DIALISIS PERITONEAL 1,5% BAXTER - DIANEAL PD-2 [Suspect]
     Dosage: 6000ML
     Route: 033

REACTIONS (2)
  - FUNGAL PERITONITIS [None]
  - WEIGHT DECREASED [None]
